FAERS Safety Report 7207393-0 (Version None)
Quarter: 2010Q4

REPORT INFORMATION
  Report Type: 
  Country: None (occurrence: None)
  Receive Date: 20101221
  Receipt Date: 20101130
  Transmission Date: 20110411
  Serious: Yes (Hospitalization)
  Sender: FDA-Public Use
  Company Number: JPI-P-004283

PATIENT
  Age: 42 Year
  Sex: Female

DRUGS (2)
  1. XYREM [Suspect]
     Indication: CATAPLEXY
     Dosage: 4.5 GM (2.25 GM, 2 IN 1 D), ORAL, 9 GM (4.5 GM, 2 IN 1 D), ORAL
     Route: 048
     Dates: start: 20080410, end: 20100121
  2. XYREM [Suspect]
     Indication: CATAPLEXY
     Dosage: 4.5 GM (2.25 GM, 2 IN 1 D), ORAL, 9 GM (4.5 GM, 2 IN 1 D), ORAL
     Route: 048
     Dates: start: 20100122

REACTIONS (10)
  - ANXIETY [None]
  - DISORIENTATION [None]
  - FALL [None]
  - HEADACHE [None]
  - INSOMNIA [None]
  - MALAISE [None]
  - MIGRAINE [None]
  - MONOPLEGIA [None]
  - TREMOR [None]
  - URINARY INCONTINENCE [None]
